FAERS Safety Report 8334186-3 (Version None)
Quarter: 2012Q2

REPORT INFORMATION
  Report Type: 
  Country: None (occurrence: None)
  Receive Date: 20120503
  Receipt Date: 20120420
  Transmission Date: 20120825
  Serious: Yes (Hospitalization, Other)
  Sender: FDA-Public Use
  Company Number: CA-ELI_LILLY_AND_COMPANY-CA201204007817

PATIENT
  Age: 83 Year
  Sex: Female

DRUGS (9)
  1. CALCIUM [Concomitant]
  2. SYNTHROID [Concomitant]
  3. FORTEO [Suspect]
     Dosage: 20 UG, QD
     Route: 058
     Dates: start: 20120401
  4. COUMADIN [Concomitant]
  5. LASIX [Concomitant]
  6. POTASSIUM CHLORIDE [Concomitant]
  7. FORTEO [Suspect]
     Indication: OSTEOPOROSIS
     Dosage: 20 UG, QD
     Route: 058
     Dates: start: 20110307, end: 20120406
  8. METOPROLOL TARTRATE [Concomitant]
  9. LOPERAMIDE [Concomitant]

REACTIONS (2)
  - DRUG DOSE OMISSION [None]
  - HAEMATOMA [None]
